FAERS Safety Report 16388480 (Version 4)
Quarter: 2020Q4

REPORT INFORMATION
  Report Type: Spontaneous
  Country: US (occurrence: US)
  Receive Date: 20190604
  Receipt Date: 20201124
  Transmission Date: 20210113
  Serious: Yes (Other)
  Sender: FDA-Public Use
  Company Number: US-PFIZER INC-2019232218

PATIENT
  Age: 51 Year
  Sex: Female

DRUGS (2)
  1. XELJANZ XR [Suspect]
     Active Substance: TOFACITINIB CITRATE
     Dosage: UNK
  2. XELJANZ XR [Suspect]
     Active Substance: TOFACITINIB CITRATE
     Dosage: 11 MG
     Dates: start: 202010

REACTIONS (6)
  - Pain [Unknown]
  - Psoriasis [Recovering/Resolving]
  - Stress [Unknown]
  - Pyrexia [Unknown]
  - Sinusitis [Unknown]
  - Weight increased [Unknown]

NARRATIVE: CASE EVENT DATE: 2020
